FAERS Safety Report 23430164 (Version 2)
Quarter: 2024Q1

REPORT INFORMATION
  Report Type: Spontaneous
  Country: IT (occurrence: IT)
  Receive Date: 20240123
  Receipt Date: 20240205
  Transmission Date: 20240409
  Serious: Yes (Hospitalization, Other)
  Sender: FDA-Public Use
  Company Number: IT-MINISAL02-964605

PATIENT
  Age: 36 Year
  Sex: Female

DRUGS (5)
  1. IBUPROFEN [Suspect]
     Active Substance: IBUPROFEN
     Indication: Inflammation
     Dosage: 600 MILLIGRAM, FOUR TIMES/DAY, ( 600MG 12 TABLETS IN 3 DAYS)
     Route: 048
     Dates: start: 20231213, end: 20231216
  2. KETOPROFEN LYSINE [Concomitant]
     Active Substance: KETOPROFEN LYSINE
     Indication: Inflammation
     Dosage: 80 MILLIGRAM, TWO TIMES A DAY, (80 MG EVERY 12 HOURS)
     Route: 042
  3. KETOPROFEN LYSINE [Concomitant]
     Active Substance: KETOPROFEN LYSINE
     Dosage: 80 MILLIGRAM, TWO TIMES A DAY, (80 MG EVERY 12 HOURS)
     Route: 048
  4. TACHIPIRINA [Concomitant]
     Active Substance: ACETAMINOPHEN
     Indication: Pyrexia
     Dosage: 1 GRAM, TWO TIMES A DAY, (1 G PER 2)
     Route: 048
  5. AZITHROMYCIN [Concomitant]
     Active Substance: AZITHROMYCIN
     Indication: Infection
     Dosage: 500 MILLIGRAM, ONCE A DAY, ( 1 TABLET PER DAY)
     Route: 048

REACTIONS (3)
  - Rash maculo-papular [Recovered/Resolved]
  - Pyrexia [Recovered/Resolved]
  - Drug abuse [Recovered/Resolved]

NARRATIVE: CASE EVENT DATE: 20231213
